FAERS Safety Report 6344521-3 (Version None)
Quarter: 2009Q3

REPORT INFORMATION
  Report Type: 
  Country: None (occurrence: None)
  Receive Date: 20090908
  Receipt Date: 20090826
  Transmission Date: 20100115
  Serious: Yes (Hospitalization)
  Sender: FDA-Public Use
  Company Number: FR-PFIZER INC-2009259722

PATIENT
  Age: 53 Year

DRUGS (4)
  1. SALAZOPYRIN [Suspect]
     Dosage: UNK
     Route: 048
     Dates: start: 20090626, end: 20090705
  2. COLCHICINE [Suspect]
     Dosage: UNK
     Route: 048
     Dates: start: 20090501
  3. COLCHICINE [Suspect]
     Dosage: UNK
     Dates: start: 20090626, end: 20090705
  4. IBUPROFENE [Concomitant]
     Dosage: UNK

REACTIONS (1)
  - TOXIC SKIN ERUPTION [None]
